FAERS Safety Report 8307012 (Version 2)
Quarter: 2012Q4

REPORT INFORMATION
  Report Type: Report from Study
  Country: US (occurrence: US)
  Receive Date: 20111222
  Receipt Date: 20121220
  Transmission Date: 20130627
  Serious: Yes (Other)
  Sender: FDA-Public Use
  Company Number: US-CELGENEUS-163-21880-11121995

PATIENT
  Age: 64 Year
  Sex: Female
  Weight: 101.4 kg

DRUGS (26)
  1. REVLIMID [Suspect]
     Indication: MULTIPLE MYELOMA
     Dosage: 25 Milligram
     Route: 048
     Dates: start: 20110812, end: 20111103
  2. CARFILZOMIB [Suspect]
     Indication: MULTIPLE MYELOMA
     Route: 065
  3. DEXAMETHASONE [Suspect]
     Indication: MULTIPLE MYELOMA
     Dosage: 40 Milligram
     Route: 065
     Dates: start: 20110812, end: 20110819
  4. DEXAMETHASONE [Suspect]
     Dosage: 20 Milligram
     Route: 065
     Dates: start: 20110909, end: 20111028
  5. THALOMID [Suspect]
     Indication: MULTIPLE MYELOMA
     Route: 048
     Dates: start: 200711, end: 2008
  6. ASPIRIN [Concomitant]
     Indication: ANTICOAGULANT THERAPY
     Dosage: 81 Milligram
     Route: 048
     Dates: start: 20100608
  7. ASPIRIN [Concomitant]
     Indication: ANTIPLATELET THERAPY
  8. CIPROFLOXACIN [Concomitant]
     Indication: ANTIBIOTIC PROPHYLAXIS
     Dosage: 500 Milligram
     Route: 048
     Dates: start: 20110812
  9. LANSOPRAZOLE [Concomitant]
     Indication: DRUG USE FOR UNKNOWN INDICATION
     Dosage: 15 Milligram
     Route: 048
     Dates: start: 20110812
  10. MAGNESIUM OXIDE [Concomitant]
     Indication: MAGNESIUM SUPPLEMENTATION
     Dosage: 500 Milligram
     Route: 048
     Dates: start: 20080630
  11. METOPROLOL ER SUCCINATE [Concomitant]
     Indication: BLOOD PRESSURE
     Dosage: 100 Milligram
     Route: 048
     Dates: start: 20100806
  12. METOPROLOL ER SUCCINATE [Concomitant]
     Indication: PULMONARY HYPERTENSION
  13. NEURONTIN [Concomitant]
     Indication: NEUROPATHIC PAIN
     Dosage: 900 Milligram
     Route: 048
     Dates: start: 20080208
  14. PLAVIX [Concomitant]
     Indication: PROPHYLAXIS
     Dosage: 75 Milligram
     Route: 048
     Dates: start: 20101209
  15. ALBUTEROL [Concomitant]
     Indication: SHORTNESS OF BREATH
     Dosage: 2 puffs
     Route: 055
     Dates: start: 20111017
  16. AMLODIPINE BESYLATE [Concomitant]
     Indication: PULMONARY HYPERTENSION
     Dosage: 10 Milligram
     Route: 048
     Dates: start: 20111017
  17. FENTANYL [Concomitant]
     Indication: PAIN BACK
     Dosage: 25 Microgram
     Route: 062
     Dates: start: 20111017
  18. FLONASE [Concomitant]
     Indication: COPD
     Route: 055
     Dates: start: 20110913
  19. FLOVENT [Concomitant]
     Indication: COPD
     Dosage: 220 Microgram
     Route: 055
     Dates: start: 20081112
  20. LANTUS SOLOSTAR [Concomitant]
     Indication: DIABETES
     Dosage: 65 units
     Route: 058
     Dates: start: 20110913
  21. LISINOPRIL [Concomitant]
     Indication: PULMONARY HYPERTENSION
     Dosage: 20 Milligram
     Route: 062
     Dates: start: 20111017
  22. SENEKOT [Concomitant]
     Indication: CONSTIPATION
     Dosage: 1-2
     Route: 048
     Dates: start: 2008
  23. SEREVENT DISKUS [Concomitant]
     Indication: COPD
     Dosage: 44 Microgram
     Route: 055
     Dates: start: 20110913
  24. SIMVASTATIN [Concomitant]
     Indication: HYPERLIPIDEMIA
     Dosage: 20 Milligram
     Route: 055
     Dates: start: 20111017
  25. SPIRIVIA [Concomitant]
     Indication: COPD
     Dosage: 18 Microgram
     Route: 055
     Dates: start: 20110913
  26. XOPENEX [Concomitant]
     Indication: PNEUMONIA
     Dosage: 18 Microgram
     Route: 055
     Dates: start: 20110826

REACTIONS (1)
  - Non-small cell lung cancer [Not Recovered/Not Resolved]
